FAERS Safety Report 25068270 (Version 1)
Quarter: 2025Q1

REPORT INFORMATION
  Report Type: Report from Study
  Country: IT (occurrence: IT)
  Receive Date: 20250312
  Receipt Date: 20250312
  Transmission Date: 20250408
  Serious: Yes (Other)
  Sender: AUROBINDO
  Company Number: IT-AUROBINDO-AUR-APL-2025-013058

PATIENT
  Age: 2 Year
  Sex: Male
  Weight: 15.6 kg

DRUGS (1)
  1. MEROPENEM [Suspect]
     Active Substance: MEROPENEM
     Indication: Pneumonia
     Dosage: 250 MILLIGRAM, 3 TIMES A DAY (CONTINUOUS INFUSION)
     Route: 065

REACTIONS (1)
  - Drug resistance [Unknown]
